FAERS Safety Report 23999255 (Version 1)
Quarter: 2024Q2

REPORT INFORMATION
  Report Type: Spontaneous
  Country: US (occurrence: US)
  Receive Date: 20240621
  Receipt Date: 20240621
  Transmission Date: 20240716
  Serious: No
  Sender: FDA-Public Use
  Company Number: US-HIKMA PHARMACEUTICALS USA INC.-US-H14001-23-68310

PATIENT
  Age: 75 Year
  Sex: Male
  Weight: 77.1 kg

DRUGS (3)
  1. FLUTICASONE PROPIONATE [Suspect]
     Active Substance: FLUTICASONE PROPIONATE
     Indication: Nasal congestion
     Dosage: 100 MICROGRAM IN EACH NOSTRIL, SINGLE
     Route: 045
     Dates: start: 20231210, end: 20231210
  2. FLUTICASONE PROPIONATE [Suspect]
     Active Substance: FLUTICASONE PROPIONATE
     Dosage: 100 MICROGRAM IN EACH NOSTRIL, SINGLE
     Route: 045
     Dates: start: 20231211, end: 20231211
  3. FLUTICASONE PROPIONATE [Suspect]
     Active Substance: FLUTICASONE PROPIONATE
     Dosage: 100 MICROGRAM IN EACH NOSTRIL, SINGLE
     Route: 045
     Dates: start: 20231212, end: 20231212

REACTIONS (4)
  - Condition aggravated [Recovered/Resolved]
  - Nasal congestion [Recovered/Resolved]
  - Inappropriate schedule of product administration [Unknown]
  - Overdose [Unknown]

NARRATIVE: CASE EVENT DATE: 20231210
